FAERS Safety Report 6936649-1 (Version None)
Quarter: 2010Q3

REPORT INFORMATION
  Report Type: 
  Country: None (occurrence: None)
  Receive Date: 20100818
  Receipt Date: 20100804
  Transmission Date: 20110219
  Serious: Yes (Hospitalization)
  Sender: FDA-Public Use
  Company Number: 7001987

PATIENT
  Age: 60 Year
  Sex: Female

DRUGS (3)
  1. REBIF [Suspect]
     Indication: MULTIPLE SCLEROSIS
     Dosage: 44 MCG, 3 IN 1 WK, SUBCUTANEOUS
     Route: 058
     Dates: start: 20091206
  2. BYETTA [Concomitant]
  3. UNSPECIFIED DIABETIC MEDICATION (ORAL ANTIDIABETICS) [Concomitant]

REACTIONS (8)
  - AMENORRHOEA [None]
  - CONSTIPATION [None]
  - FALLOPIAN TUBE CANCER [None]
  - FLUID RETENTION [None]
  - MULTIPLE SCLEROSIS RELAPSE [None]
  - OVARIAN NEOPLASM [None]
  - POLYMENORRHOEA [None]
  - UTERINE CANCER [None]
